FAERS Safety Report 22049355 (Version 9)
Quarter: 2024Q1

REPORT INFORMATION
  Report Type: Spontaneous
  Country: US (occurrence: US)
  Receive Date: 20230301
  Receipt Date: 20240312
  Transmission Date: 20240410
  Serious: No
  Sender: FDA-Public Use
  Company Number: US-PFIZER INC-2019357021

PATIENT
  Age: 79 Year
  Sex: Male
  Weight: 70.295 kg

DRUGS (2)
  1. BOSULIF [Suspect]
     Active Substance: BOSUTINIB MONOHYDRATE
     Indication: Chronic myeloid leukaemia
     Dosage: 200 MG, DAILY
  2. BOSULIF [Suspect]
     Active Substance: BOSUTINIB MONOHYDRATE
     Dosage: 100 MG 4 TABS DAILY
     Route: 048

REACTIONS (2)
  - Neoplasm progression [Not Recovered/Not Resolved]
  - Product dispensing error [Unknown]
